FAERS Safety Report 16910988 (Version 1)
Quarter: 2019Q4

REPORT INFORMATION
  Report Type: Spontaneous
  Country: FR (occurrence: FR)
  Receive Date: 20191012
  Receipt Date: 20191012
  Transmission Date: 20200122
  Serious: Yes (Hospitalization)
  Sender: FDA-Public Use
  Company Number: FR-ACCORD-156969

PATIENT
  Age: 65 Year
  Sex: Male

DRUGS (1)
  1. CISATRACURIUM ACCORD [Suspect]
     Active Substance: CISATRACURIUM BESYLATE
     Indication: ANAESTHESIA
     Dosage: STRENGTH: 2 MG/ML
     Route: 042
     Dates: start: 20190125, end: 20190125

REACTIONS (1)
  - Drug ineffective [Unknown]

NARRATIVE: CASE EVENT DATE: 20190125
